FAERS Safety Report 26084300 (Version 1)
Quarter: 2025Q4

REPORT INFORMATION
  Report Type: Spontaneous
  Country: JP (occurrence: JP)
  Receive Date: 20251124
  Receipt Date: 20251124
  Transmission Date: 20260117
  Serious: Yes (Other)
  Sender: NX DEVELOPMENT CORPORATION
  Company Number: JP-sbiph-S000203610P

PATIENT

DRUGS (1)
  1. AMINOLEVULINIC ACID HYDROCHLORIDE [Suspect]
     Active Substance: AMINOLEVULINIC ACID HYDROCHLORIDE
     Indication: Bladder transitional cell carcinoma
     Route: 048

REACTIONS (2)
  - Shock [Recovered/Resolved]
  - Hypotension [Unknown]
